FAERS Safety Report 15339748 (Version 1)
Quarter: 2018Q3

REPORT INFORMATION
  Report Type: Spontaneous
  Country: BE (occurrence: BE)
  Receive Date: 20180831
  Receipt Date: 20180831
  Transmission Date: 20181010
  Serious: Yes (Hospitalization)
  Sender: FDA-Public Use
  Company Number: BE-ALLERGAN-1841972US

PATIENT
  Age: 67 Year
  Sex: Female

DRUGS (3)
  1. OZURDEX [Suspect]
     Active Substance: DEXAMETHASONE
     Dosage: 0.7 MG, SINGLE
     Route: 031
  2. OZURDEX [Suspect]
     Active Substance: DEXAMETHASONE
     Indication: BIRDSHOT CHORIORETINOPATHY
     Dosage: 0.7 MG, SINGLE
     Route: 031
     Dates: start: 201803, end: 201803
  3. ASPIRIN. [Concomitant]
     Active Substance: ASPIRIN

REACTIONS (2)
  - Visual impairment [Not Recovered/Not Resolved]
  - Off label use [Unknown]

NARRATIVE: CASE EVENT DATE: 20180824
